FAERS Safety Report 6474866-8 (Version None)
Quarter: 2009Q4

REPORT INFORMATION
  Report Type: 
  Country: None (occurrence: None)
  Receive Date: 20091204
  Receipt Date: 20090720
  Transmission Date: 20100525
  Serious: Yes (Hospitalization, Other)
  Sender: FDA-Public Use
  Company Number: US-ELI_LILLY_AND_COMPANY-US200902005175

PATIENT
  Sex: Female
  Weight: 71.655 kg

DRUGS (10)
  1. BYETTA [Suspect]
     Indication: TYPE 2 DIABETES MELLITUS
     Dosage: 5 UG, 2/D
     Route: 058
     Dates: start: 20070201, end: 20070301
  2. BYETTA [Suspect]
     Dosage: 10 UG, 2/D
     Route: 058
     Dates: start: 20070301, end: 20071001
  3. SYNTHROID [Concomitant]
     Indication: THYROID DISORDER
     Dosage: UNK, UNK
     Dates: start: 20060101
  4. SYNTHROID [Concomitant]
     Dosage: 112 UG, DAILY (1/D)
     Route: 048
     Dates: start: 20070721, end: 20071016
  5. SYNTHROID [Concomitant]
     Dosage: 125 UG, DAILY (1/D)
     Route: 048
     Dates: start: 20071016
  6. METFORMIN HCL [Concomitant]
     Indication: TYPE 2 DIABETES MELLITUS
  7. PAXIL [Concomitant]
     Dosage: 20 MG, DAILY (1/D)
     Route: 048
  8. ADVIL LIQUI-GELS [Concomitant]
     Dosage: 600 MG, 3/D
     Route: 048
  9. OMEPRAZOLE [Concomitant]
     Dosage: 20 MG, DAILY (1/D)
     Route: 048
  10. PROTONIX [Concomitant]
     Dosage: 40 MG, DAILY (1/D)
     Dates: start: 20070101

REACTIONS (13)
  - BLOOD THYROID STIMULATING HORMONE INCREASED [None]
  - CANDIDIASIS [None]
  - CELLULITIS [None]
  - CONSTIPATION [None]
  - DIABETES MELLITUS INADEQUATE CONTROL [None]
  - DIABETIC KETOACIDOSIS [None]
  - HAEMORRHOIDS [None]
  - LOSS OF CONSCIOUSNESS [None]
  - NOSOCOMIAL INFECTION [None]
  - SEPSIS [None]
  - STAPHYLOCOCCAL INFECTION [None]
  - VAGINAL INFECTION [None]
  - WEIGHT DECREASED [None]
